FAERS Safety Report 21287072 (Version 1)
Quarter: 2022Q3

REPORT INFORMATION
  Report Type: Spontaneous
  Country: US (occurrence: None)
  Receive Date: 20220902
  Receipt Date: 20220902
  Transmission Date: 20221027
  Serious: No
  Sender: FDA-Public Use
  Company Number: None

PATIENT
  Age: 69 Year
  Sex: Male
  Weight: 266.7 kg

DRUGS (9)
  1. IMATINIB MESYLATE [Suspect]
     Active Substance: IMATINIB MESYLATE
     Indication: Gastrointestinal stromal tumour
     Dosage: FREQUENCY : DAILY;?
     Route: 048
  2. CEFDINIR [Concomitant]
     Active Substance: CEFDINIR
  3. ELIQUIS [Concomitant]
  4. IRON [Concomitant]
  5. LASIX [Concomitant]
  6. PANTOPRAZOLE SODIUM [Concomitant]
  7. POTASSIUM CHLORIDE [Concomitant]
  8. CRYS ER [Concomitant]
  9. SANDOSTATIN [Concomitant]

REACTIONS (1)
  - Disease progression [None]
